FAERS Safety Report 9104246 (Version 1)
Quarter: 2013Q1

REPORT INFORMATION
  Report Type: Spontaneous
  Country: FR (occurrence: FR)
  Receive Date: 20130219
  Receipt Date: 20130219
  Transmission Date: 20140127
  Serious: Yes (Hospitalization, Other)
  Sender: FDA-Public Use
  Company Number: PHHY2013FR014709

PATIENT
  Age: 21 Year
  Sex: Female

DRUGS (3)
  1. TEGRETOL [Suspect]
     Dosage: UNK UKN, UNK
     Route: 048
     Dates: start: 20120225, end: 20120315
  2. DEPAKINE CHRONO [Concomitant]
     Dosage: 1500 MG, DAILY
     Route: 048
  3. KEPPRA [Concomitant]

REACTIONS (10)
  - Drug reaction with eosinophilia and systemic symptoms [Recovered/Resolved]
  - Pyrexia [Unknown]
  - Odynophagia [Unknown]
  - Conjunctivitis [Unknown]
  - Rhinitis [Unknown]
  - Leukopenia [Unknown]
  - Neutropenia [Unknown]
  - Grand mal convulsion [Unknown]
  - Hypocalcaemia [Unknown]
  - Vitamin D decreased [Unknown]
